FAERS Safety Report 8543351-1 (Version None)
Quarter: 2012Q3

REPORT INFORMATION
  Report Type: 
  Country: None (occurrence: None)
  Receive Date: 20120719
  Receipt Date: 20120719
  Transmission Date: 20120928
  Serious: Yes (Other)
  Sender: FDA-Public Use
  Company Number: None

PATIENT
  Sex: Male
  Weight: 85.2762 kg

DRUGS (2)
  1. BRILINTA [Suspect]
     Indication: STENT PLACEMENT
     Dosage: 90MG 2 TIMES A DAY PO
     Route: 048
     Dates: start: 20120418, end: 20120718
  2. BRILINTA (TICAGRELOR) [Concomitant]

REACTIONS (5)
  - DYSPNOEA [None]
  - EYE HAEMORRHAGE [None]
  - DIZZINESS [None]
  - COUGH [None]
  - HEADACHE [None]
